FAERS Safety Report 5491207-3 (Version None)
Quarter: 2007Q4

REPORT INFORMATION
  Report Type: 
  Country: None (occurrence: None)
  Receive Date: 20071019
  Receipt Date: 20071010
  Transmission Date: 20080405
  Serious: Yes (Other)
  Sender: FDA-Public Use
  Company Number: FR-PFIZER INC-2007086029

PATIENT
  Sex: Female

DRUGS (3)
  1. ZOLOFT [Suspect]
     Indication: DEPRESSION
  2. ARICEPT [Interacting]
     Dosage: DAILY DOSE:10MG-FREQ:EVERY DAY
     Dates: start: 20070901, end: 20070101
  3. ESCITALOPRAM OXALATE [Interacting]
     Dates: start: 20070901, end: 20071001

REACTIONS (4)
  - AGGRESSION [None]
  - DELIRIUM [None]
  - DRUG INEFFECTIVE [None]
  - DRUG INTERACTION [None]
